FAERS Safety Report 17316872 (Version 1)
Quarter: 2020Q1

REPORT INFORMATION
  Report Type: Spontaneous
  Country: SE (occurrence: SE)
  Receive Date: 20200124
  Receipt Date: 20200124
  Transmission Date: 20200409
  Serious: Yes (Disabling)
  Sender: FDA-Public Use
  Company Number: SE-PFIZER INC-2020031932

PATIENT
  Age: 33 Year
  Sex: Female

DRUGS (3)
  1. CHAMPIX [Suspect]
     Active Substance: VARENICLINE TARTRATE
     Indication: SMOKING CESSATION THERAPY
     Dosage: 2 MG, 1X/DAY
     Route: 048
     Dates: start: 20191118, end: 20191119
  2. STESOLID [Concomitant]
     Active Substance: DIAZEPAM
     Dosage: UNK
  3. PROPAVAN [Concomitant]
     Active Substance: PROPIOMAZINE
     Dosage: UNK

REACTIONS (1)
  - Diplopia [Not Recovered/Not Resolved]

NARRATIVE: CASE EVENT DATE: 20191203
